FAERS Safety Report 5214930-4 (Version None)
Quarter: 2007Q1

REPORT INFORMATION
  Report Type: 
  Country: None (occurrence: None)
  Receive Date: 20061108
  Receipt Date: 20051201
  Transmission Date: 20070707
  Serious: Yes (Life-Threatening, Hospitalization)
  Sender: FDA-Public Use
  Company Number: PHEH2005US11971

PATIENT
  Age: 30 Year
  Sex: Female
  Weight: 63.5 kg

DRUGS (1)
  1. ESTRADERM [Suspect]
     Indication: ARTIFICIAL MENOPAUSE
     Dosage: 0.375 MG Q3D, TRANSDERMAL
     Route: 062
     Dates: start: 20050901, end: 20051105

REACTIONS (3)
  - PRURITUS [None]
  - PULMONARY EMBOLISM [None]
  - URTICARIA [None]
